FAERS Safety Report 11770929 (Version 1)
Quarter: 2015Q4

REPORT INFORMATION
  Report Type: Spontaneous
  Country: US (occurrence: US)
  Receive Date: 20151123
  Receipt Date: 20151123
  Transmission Date: 20160304
  Serious: No
  Sender: FDA-Public Use
  Company Number: US-JNJFOC-20151022832

PATIENT
  Sex: Female

DRUGS (6)
  1. ULTRAM [Suspect]
     Active Substance: TRAMADOL HYDROCHLORIDE
     Indication: ENDOMETRIOSIS
     Dosage: 50 MG 10 TABLETS A DAY
     Route: 048
     Dates: start: 20151028
  2. ULTRAM [Suspect]
     Active Substance: TRAMADOL HYDROCHLORIDE
     Indication: FIBROMYALGIA
     Dosage: 50 MG 2 TABLETS EVERY 6 HOURS
     Route: 048
     Dates: start: 201510, end: 20151028
  3. ULTRAM [Suspect]
     Active Substance: TRAMADOL HYDROCHLORIDE
     Indication: ENDOMETRIOSIS
     Dosage: 50 MG 10 TABLETS A DAY
     Route: 048
     Dates: end: 201510
  4. ULTRAM [Suspect]
     Active Substance: TRAMADOL HYDROCHLORIDE
     Indication: FIBROMYALGIA
     Dosage: 50 MG 10 TABLETS A DAY
     Route: 048
     Dates: end: 201510
  5. ULTRAM [Suspect]
     Active Substance: TRAMADOL HYDROCHLORIDE
     Indication: FIBROMYALGIA
     Dosage: 50 MG 10 TABLETS A DAY
     Route: 048
     Dates: start: 20151028
  6. ULTRAM [Suspect]
     Active Substance: TRAMADOL HYDROCHLORIDE
     Indication: ENDOMETRIOSIS
     Dosage: 50 MG 2 TABLETS EVERY 6 HOURS
     Route: 048
     Dates: start: 201510, end: 20151028

REACTIONS (1)
  - Incorrect dose administered [Unknown]
